FAERS Safety Report 7347142-9 (Version None)
Quarter: 2011Q1

REPORT INFORMATION
  Report Type: 
  Country: None (occurrence: None)
  Receive Date: 20110311
  Receipt Date: 20110304
  Transmission Date: 20110831
  Serious: Yes (Hospitalization)
  Sender: FDA-Public Use
  Company Number: US-ALEXION-A201100296

PATIENT
  Sex: Male
  Weight: 47 kg

DRUGS (7)
  1. SOLIRIS [Suspect]
     Indication: PAROXYSMAL NOCTURNAL HAEMOGLOBINURIA
     Dosage: 600 MG, QW
     Route: 042
     Dates: start: 20081001
  2. ARANESP [Concomitant]
     Indication: RENAL FAILURE
     Dosage: 300 MCG, Q2W
     Route: 058
     Dates: start: 20081001
  3. CALCITRIOL [Concomitant]
     Indication: HYPOCALCAEMIA
     Dosage: 0.25, QD
     Route: 048
  4. TRAMADOL [Concomitant]
     Indication: PAIN
     Dosage: 50 MG, PRN
     Route: 048
  5. SOLIRIS [Suspect]
     Dosage: 900 MG, Q2W
     Route: 042
  6. CALCIUM CARBONATE [Concomitant]
     Indication: HYPOCALCAEMIA
     Dosage: 500 MG, QD
     Route: 048
  7. PREDNISONE TAB [Concomitant]
     Indication: PAROXYSMAL NOCTURNAL HAEMOGLOBINURIA
     Dosage: 20 MG, QD
     Route: 048
     Dates: start: 20081001

REACTIONS (1)
  - PNEUMONIA [None]
